FAERS Safety Report 8270043-9 (Version None)
Quarter: 2012Q2

REPORT INFORMATION
  Report Type: 
  Country: None (occurrence: None)
  Receive Date: 20120405
  Receipt Date: 20120322
  Transmission Date: 20120825
  Serious: Yes (Death)
  Sender: FDA-Public Use
  Company Number: TCI2012A01340

PATIENT
  Age: 69 Year
  Sex: Male

DRUGS (3)
  1. SULFONAMIDES, UREA DERIVATIVES [Concomitant]
  2. ACTOS [Suspect]
     Indication: TYPE 2 DIABETES MELLITUS
     Dosage: 15MG (15MG, 1 D)PER ORAL, 30 MG (30 MG,1 D)PER ORAL
     Route: 048
     Dates: start: 20091207
  3. ACTOS [Suspect]
     Indication: TYPE 2 DIABETES MELLITUS
     Dosage: 15MG (15MG, 1 D)PER ORAL, 30 MG (30 MG,1 D)PER ORAL
     Route: 048
     Dates: end: 20111127

REACTIONS (1)
  - ACUTE MYOCARDIAL INFARCTION [None]
